FAERS Safety Report 17792745 (Version 1)
Quarter: 2020Q2

REPORT INFORMATION
  Report Type: Spontaneous
  Country: GB (occurrence: GB)
  Receive Date: 20200515
  Receipt Date: 20200515
  Transmission Date: 20200714
  Serious: Yes (Other)
  Sender: FDA-Public Use
  Company Number: GB-PFIZER INC-2020192014

PATIENT
  Age: 69 Year
  Sex: Female
  Weight: 51.1 kg

DRUGS (12)
  1. DOCUSATE [Concomitant]
     Active Substance: DOCUSATE
     Indication: CONSTIPATION
     Dosage: UNK
  2. METOCLOPRAMIDE. [Concomitant]
     Active Substance: METOCLOPRAMIDE
     Indication: NAUSEA
     Dosage: TDS, PRN
  3. LEVOMEPROMAZINE [Concomitant]
     Active Substance: LEVOMEPROMAZINE
     Indication: NAUSEA
     Dosage: 6 MG AT NIGHT
  4. GEMCITABINE HYDROCHLORIDE. [Suspect]
     Active Substance: GEMCITABINE HYDROCHLORIDE
     Indication: PANCREATIC CARCINOMA
     Dosage: IN 250 ML 0.9% SODIUM CHLORIDE DAY 1, 8 AND 15 DAY
     Dates: start: 20200219
  5. ONDANSETRON [Concomitant]
     Active Substance: ONDANSETRON
     Indication: ANTIEMETIC SUPPORTIVE CARE
     Dosage: UNK
  6. MORPHINE SULPHATE [Concomitant]
     Active Substance: MORPHINE SULFATE
     Indication: PAIN
     Dosage: PO, BD,
     Route: 048
  7. BACTERIOSTATIC SODIUM CHLORIDE [Suspect]
     Active Substance: SODIUM CHLORIDE
     Indication: IRRIGATION THERAPY
     Dosage: 30 MIN IV INFUSION 1,8 AND 15TH DAY, 0.9 % SODIUM CHLORIDE
     Route: 042
     Dates: start: 20200219
  8. FLUCONAZOLE. [Concomitant]
     Active Substance: FLUCONAZOLE
     Indication: ANTIFUNGAL TREATMENT
     Dosage: 50 MG, 1X/DAY PO
     Route: 048
  9. ABRAXANE [Suspect]
     Active Substance: PACLITAXEL
     Indication: PANCREATIC CARCINOMA
     Dosage: DAY 1, 8 AND 15
     Route: 042
     Dates: start: 20200219
  10. ONDANSETRON [Concomitant]
     Active Substance: ONDANSETRON
     Indication: PREMEDICATION
     Dosage: STAT
     Route: 048
     Dates: start: 20200219
  11. MORPHINE [Concomitant]
     Active Substance: MORPHINE
     Indication: BREAKTHROUGH PAIN
     Dosage: UNK, AS NEEDED
  12. SODIUM CHLORIDE. [Suspect]
     Active Substance: SODIUM CHLORIDE
     Indication: MEDICATION DILUTION
     Dosage: WITH GEMCITABINE DAY 1,8 AND 15 DAY
     Dates: start: 20200219

REACTIONS (2)
  - Thrombophlebitis [Unknown]
  - Infusion site phlebitis [Recovered/Resolved with Sequelae]

NARRATIVE: CASE EVENT DATE: 202003
